FAERS Safety Report 18742536 (Version 2)
Quarter: 2021Q1

REPORT INFORMATION
  Report Type: Spontaneous
  Country: US (occurrence: US)
  Receive Date: 20210114
  Receipt Date: 20210210
  Transmission Date: 20210419
  Serious: Yes (Hospitalization)
  Sender: FDA-Public Use
  Company Number: US-TEVA-2021-US-1867295

PATIENT
  Age: 62 Year
  Sex: Female

DRUGS (1)
  1. AZITHROMYCIN ANHYDROUS. [Suspect]
     Active Substance: AZITHROMYCIN ANHYDROUS
     Indication: PNEUMONIA
     Route: 065

REACTIONS (8)
  - Acute on chronic liver failure [Recovered/Resolved]
  - Portal hypertensive enteropathy [Recovering/Resolving]
  - Hyperbilirubinaemia [Recovered/Resolved]
  - Portal vein thrombosis [Recovering/Resolving]
  - Splenomegaly [Recovering/Resolving]
  - Ascites [Recovering/Resolving]
  - Nephrotic syndrome [Recovered/Resolved]
  - Cholestasis [Recovered/Resolved]
